FAERS Safety Report 6095222-0 (Version None)
Quarter: 2009Q1

REPORT INFORMATION
  Report Type: 
  Country: None (occurrence: None)
  Receive Date: 20090227
  Receipt Date: 20080211
  Transmission Date: 20090719
  Serious: No
  Sender: FDA-Public Use
  Company Number: A0709748A

PATIENT
  Age: 34 Year
  Sex: Male

DRUGS (3)
  1. LAMICTAL [Suspect]
     Indication: BIPOLAR DISORDER
     Route: 065
  2. CHANTIX [Suspect]
     Indication: SMOKING CESSATION THERAPY
     Route: 065
  3. SEROQUEL [Suspect]
     Indication: BIPOLAR DISORDER
     Dosage: 325MG PER DAY
     Route: 065

REACTIONS (5)
  - AGITATION [None]
  - DELUSION [None]
  - DRUG INTERACTION [None]
  - MEDICATION ERROR [None]
  - SOMNOLENCE [None]
